FAERS Safety Report 10509804 (Version 1)
Quarter: 2014Q4

REPORT INFORMATION
  Report Type: Spontaneous
  Country: US (occurrence: US)
  Receive Date: 20141010
  Receipt Date: 20141010
  Transmission Date: 20150528
  Serious: No
  Sender: FDA-Public Use
  Company Number: US-BIOGENIDEC-2014BI103246

PATIENT
  Age: 67 Year
  Sex: Female

DRUGS (15)
  1. MUCINEX [Concomitant]
     Active Substance: GUAIFENESIN
  2. LANTUS SOLOSTAR [Concomitant]
     Active Substance: INSULIN GLARGINE
  3. HYDROCHLOROTHIAZIDE. [Concomitant]
     Active Substance: HYDROCHLOROTHIAZIDE
  4. NUVIGIL [Concomitant]
     Active Substance: ARMODAFINIL
  5. WELLBUTRIN SR [Concomitant]
     Active Substance: BUPROPION HYDROCHLORIDE
  6. LABETATOL HCL [Concomitant]
  7. AMPYRA [Concomitant]
     Active Substance: DALFAMPRIDINE
  8. ZYRTEC CHILDREN ALLERGY [Concomitant]
  9. LISINOPRIL. [Concomitant]
     Active Substance: LISINOPRIL
  10. BACLOFEN. [Concomitant]
     Active Substance: BACLOFEN
  11. TECFIDERA [Suspect]
     Active Substance: DIMETHYL FUMARATE
     Indication: MULTIPLE SCLEROSIS
     Route: 048
     Dates: start: 20130818
  12. LEXAPRO [Concomitant]
     Active Substance: ESCITALOPRAM OXALATE
  13. FUROSEMIDE. [Concomitant]
     Active Substance: FUROSEMIDE
  14. NOVOLOG [Concomitant]
     Active Substance: INSULIN ASPART
  15. GABAPENTIN. [Concomitant]
     Active Substance: GABAPENTIN

REACTIONS (1)
  - Laboratory test abnormal [Unknown]
